FAERS Safety Report 13970428 (Version 1)
Quarter: 2017Q3

REPORT INFORMATION
  Report Type: Spontaneous
  Country: US (occurrence: US)
  Receive Date: 20170914
  Receipt Date: 20170914
  Transmission Date: 20171128
  Serious: Yes (Other)
  Sender: FDA-Public Use
  Company Number: US-PFIZER INC-2017398282

PATIENT
  Age: 60 Year
  Sex: Female

DRUGS (3)
  1. PROLIA [Suspect]
     Active Substance: DENOSUMAB
     Indication: OSTEOPOROSIS
     Dosage: 60 MG ONCE EVERY SIX MONTHS
     Route: 065
  2. ENBREL [Suspect]
     Active Substance: ETANERCEPT
     Indication: ARTHRITIS
     Dosage: 50 MG, QWK
     Route: 065
     Dates: start: 2017
  3. METHOTREXATE SODIUM. [Suspect]
     Active Substance: METHOTREXATE SODIUM
     Dosage: UNK
     Route: 065

REACTIONS (18)
  - Synovial rupture [Unknown]
  - Influenza [Unknown]
  - Injection site rash [Recovered/Resolved]
  - Peripheral swelling [Unknown]
  - Injection site erythema [Recovered/Resolved]
  - Product use in unapproved indication [Unknown]
  - Synovial cyst [Unknown]
  - Myalgia [Unknown]
  - Injection site induration [Recovered/Resolved]
  - Oedema peripheral [Unknown]
  - Hernia [Unknown]
  - Osteoarthritis [Unknown]
  - Weight decreased [Unknown]
  - Arthralgia [Unknown]
  - Malaise [Unknown]
  - Alopecia [Unknown]
  - Injection site swelling [Recovered/Resolved]
  - Injection site warmth [Recovered/Resolved]

NARRATIVE: CASE EVENT DATE: 201611
